FAERS Safety Report 6542639-3 (Version None)
Quarter: 2010Q1

REPORT INFORMATION
  Report Type: 
  Country: None (occurrence: None)
  Receive Date: 20100119
  Receipt Date: 20100107
  Transmission Date: 20100710
  Serious: Yes (Hospitalization, Other)
  Sender: FDA-Public Use
  Company Number: DE-ELI_LILLY_AND_COMPANY-DE200912006091

PATIENT
  Sex: Male
  Weight: 100 kg

DRUGS (2)
  1. ZYPADHERA [Suspect]
     Indication: SCHIZOPHRENIA
     Dosage: 300 MG EVERY FOUR WEEKS
     Route: 030
     Dates: start: 20091203
  2. QUILONIUM-R [Concomitant]
     Indication: AFFECTIVE DISORDER
     Route: 048

REACTIONS (8)
  - CARDIOVASCULAR DISORDER [None]
  - DISORIENTATION [None]
  - DISTURBANCE IN ATTENTION [None]
  - DIZZINESS [None]
  - GAIT DISTURBANCE [None]
  - HYPOTONIA [None]
  - SOMNOLENCE [None]
  - SPEECH DISORDER [None]
